FAERS Safety Report 4456317-8 (Version None)
Quarter: 2004Q3

REPORT INFORMATION
  Report Type: 
  Country: None (occurrence: None)
  Receive Date: 20040902
  Receipt Date: 20040722
  Transmission Date: 20050211
  Serious: No
  Sender: FDA-Public Use
  Company Number: 200419320BWH

PATIENT
  Age: 67 Year
  Sex: Male
  Weight: 86.1834 kg

DRUGS (4)
  1. LEVITRA [Suspect]
     Indication: DISTURBANCE IN SEXUAL AROUSAL
     Dosage: 20 MG, ONCE, ORAL
     Route: 048
     Dates: start: 20040717
  2. VIAGRA [Concomitant]
  3. CIALIS [Concomitant]
  4. LIPITOR [Concomitant]

REACTIONS (3)
  - BLOOD PRESSURE DECREASED [None]
  - COLD SWEAT [None]
  - NAUSEA [None]
